FAERS Safety Report 11876247 (Version 2)
Quarter: 2016Q4

REPORT INFORMATION
  Report Type: Spontaneous
  Country: JP (occurrence: JP)
  Receive Date: 20151229
  Receipt Date: 20161013
  Transmission Date: 20170206
  Serious: Yes (Other)
  Sender: FDA-Public Use
  Company Number: JP-SA-2015SA219704

PATIENT
  Age: 76 Year
  Sex: Male

DRUGS (4)
  1. BAYASPIRIN [Concomitant]
     Active Substance: ASPIRIN
     Route: 048
  2. PLAVIX [Suspect]
     Active Substance: CLOPIDOGREL BISULFATE
     Route: 048
  3. PLETAAL [Concomitant]
     Active Substance: CILOSTAZOL
     Route: 048
  4. CILOSTAZOL. [Concomitant]
     Active Substance: CILOSTAZOL
     Route: 048

REACTIONS (2)
  - Gastric cancer [Unknown]
  - Intentional product misuse [Unknown]
